FAERS Safety Report 9421938 (Version 1)
Quarter: 2013Q3

REPORT INFORMATION
  Report Type: Spontaneous
  Country: US (occurrence: None)
  Receive Date: 20130724
  Receipt Date: 20130724
  Transmission Date: 20140515
  Serious: Yes (Hospitalization)
  Sender: FDA-Public Use
  Company Number: None

PATIENT
  Age: 71 Year
  Sex: Male
  Weight: 99.79 kg

DRUGS (1)
  1. DONEPEZIL [Suspect]
     Indication: DEMENTIA
     Dates: start: 20130619, end: 20130702

REACTIONS (3)
  - Agitation [None]
  - Swollen tongue [None]
  - Incoherent [None]
